FAERS Safety Report 7206200-X (Version None)
Quarter: 2010Q4

REPORT INFORMATION
  Report Type: 
  Country: None (occurrence: None)
  Receive Date: 20101229
  Receipt Date: 20101229
  Transmission Date: 20110411
  Serious: Yes (Hospitalization, Other)
  Sender: FDA-Public Use
  Company Number: None

PATIENT
  Age: 82 Year
  Sex: Male
  Weight: 65.7716 kg

DRUGS (1)
  1. AMANTADINE HCL [Suspect]
     Indication: PARKINSON'S DISEASE
     Dosage: 1 CAPSULE 2 TIMES A DAY
     Dates: start: 20100604, end: 20100613

REACTIONS (4)
  - BALANCE DISORDER [None]
  - BLOOD PRESSURE DECREASED [None]
  - FALL [None]
  - LACERATION [None]
